FAERS Safety Report 5929643-0 (Version None)
Quarter: 2008Q3

REPORT INFORMATION
  Report Type: 
  Country: None (occurrence: None)
  Receive Date: 20080929
  Receipt Date: 20080617
  Transmission Date: 20090109
  Serious: No
  Sender: FDA-Public Use
  Company Number: PHE2008US02223

PATIENT
  Age: 57 Year
  Sex: Female
  Weight: 57.6 kg

DRUGS (1)
  1. TASIGNA [Suspect]
     Indication: CHRONIC MYELOID LEUKAEMIA
     Dosage: 400 MG, BID, ORAL
     Route: 048
     Dates: start: 20080208, end: 20080226

REACTIONS (1)
  - HAEMATOCRIT DECREASED [None]
